FAERS Safety Report 16607118 (Version 8)
Quarter: 2019Q4

REPORT INFORMATION
  Report Type: Spontaneous
  Country: JP (occurrence: JP)
  Receive Date: 20190722
  Receipt Date: 20191031
  Transmission Date: 20200122
  Serious: Yes (Death, Hospitalization, Other)
  Sender: FDA-Public Use
  Company Number: JP-ASTELLAS-2019JP015606

PATIENT
  Age: 6 Decade
  Sex: Male

DRUGS (3)
  1. GANCICLOVIR. [Concomitant]
     Active Substance: GANCICLOVIR
     Indication: PRODUCT USED FOR UNKNOWN INDICATION
     Dosage: UNK UNK, UNKNOWN FREQ.
     Route: 065
  2. XOSPATA [Suspect]
     Active Substance: GILTERITINIB
     Route: 048
     Dates: start: 20190729
  3. XOSPATA [Suspect]
     Active Substance: GILTERITINIB
     Indication: PRODUCT USED FOR UNKNOWN INDICATION
     Route: 048
     Dates: start: 20190530, end: 20190717

REACTIONS (9)
  - Hepatic function abnormal [Recovering/Resolving]
  - Infection [Fatal]
  - Pulmonary alveolar haemorrhage [Recovered/Resolved]
  - Cytopenia [Fatal]
  - Death [Fatal]
  - Atrial fibrillation [Fatal]
  - Neutropenia [Recovering/Resolving]
  - Malaise [Recovering/Resolving]
  - Cerebral artery embolism [Fatal]

NARRATIVE: CASE EVENT DATE: 20190717
